FAERS Safety Report 16330333 (Version 1)
Quarter: 2019Q2

REPORT INFORMATION
  Report Type: Spontaneous
  Country: US (occurrence: US)
  Receive Date: 20190520
  Receipt Date: 20190520
  Transmission Date: 20190711
  Serious: Yes (Hospitalization, Other)
  Sender: FDA-Public Use
  Company Number: US-AUROBINDO-AUR-APL-2019-026712

PATIENT

DRUGS (1)
  1. CETIRIZINE HYDROCHLORIDE TABLETS USP 10MG [Suspect]
     Active Substance: CETIRIZINE HYDROCHLORIDE
     Indication: ABDOMINAL PAIN
     Dosage: INGESTION OF 10-16 TABLETS OF CETIRIZINE (10MG EACH)
     Route: 048

REACTIONS (3)
  - Intentional product misuse [Unknown]
  - Methaemoglobinaemia [Recovering/Resolving]
  - Cyanosis central [Recovering/Resolving]
